FAERS Safety Report 12342649 (Version 1)
Quarter: 2016Q2

REPORT INFORMATION
  Report Type: Spontaneous
  Country: FR (occurrence: FR)
  Receive Date: 20160506
  Receipt Date: 20160506
  Transmission Date: 20160815
  Serious: Yes (Hospitalization)
  Sender: FDA-Public Use
  Company Number: FR-BAYER-2016-082588

PATIENT
  Age: 81 Year
  Sex: Male

DRUGS (8)
  1. TAHOR [Suspect]
     Active Substance: ATORVASTATIN CALCIUM
     Dosage: 80 MG, QD
     Route: 048
     Dates: start: 200810, end: 20160311
  2. TRANSIPEG [Suspect]
     Active Substance: POLYETHYLENE GLYCOL 3350
     Dosage: 5.9 G, QD
     Route: 048
     Dates: start: 201510, end: 20160311
  3. FLUOXETINE [Suspect]
     Active Substance: FLUOXETINE HYDROCHLORIDE
     Dosage: 20 MG, QD
     Route: 048
     Dates: start: 2008, end: 20160311
  4. TEMESTA [Suspect]
     Active Substance: LORAZEPAM
     Dosage: DAILY DOSE 3 MG
     Route: 048
     Dates: start: 2006, end: 20160311
  5. COVERSYL [Suspect]
     Active Substance: PERINDOPRIL
     Dosage: 2.5 MG, QD
     Route: 048
     Dates: start: 201506, end: 20160311
  6. DOLIPRANE [Suspect]
     Active Substance: ACETAMINOPHEN
     Dosage: 1000 MG, TID
     Route: 048
     Dates: start: 201509
  7. METFORMINE [Suspect]
     Active Substance: METFORMIN HYDROCHLORIDE
     Dosage: 500 MG, BID
     Route: 048
     Dates: start: 201506, end: 20160311
  8. IXPRIM [Suspect]
     Active Substance: ACETAMINOPHEN\TRAMADOL HYDROCHLORIDE
     Dosage: 6 DF, QD
     Route: 048
     Dates: start: 201506, end: 201603

REACTIONS (1)
  - Hepatocellular injury [Recovered/Resolved]

NARRATIVE: CASE EVENT DATE: 20160310
